FAERS Safety Report 8128155 (Version 3)
Quarter: 2014Q1

REPORT INFORMATION
  Report Type: Report from Study
  Country: DE (occurrence: DE)
  Receive Date: 20110909
  Receipt Date: 20140117
  Transmission Date: 20141002
  Serious: Yes (Other)
  Sender: FDA-Public Use
  Company Number: DE-JNJFOC-20110901172

PATIENT
  Age: 60 Year
  Sex: Male
  Weight: 150 kg

DRUGS (5)
  1. USTEKINUMAB [Suspect]
     Indication: PSORIASIS
     Route: 058
     Dates: start: 20090224, end: 201103
  2. USTEKINUMAB [Suspect]
     Indication: PSORIASIS
     Route: 058
     Dates: start: 201108
  3. ASS [Concomitant]
     Route: 048
     Dates: start: 201101
  4. JANUMET [Concomitant]
     Route: 048
     Dates: start: 2008
  5. RAMIPRIL [Concomitant]
     Route: 048
     Dates: start: 201012

REACTIONS (2)
  - Cardiac failure [Recovered/Resolved]
  - Myocardial infarction [Recovered/Resolved]
